FAERS Safety Report 7338861-9 (Version None)
Quarter: 2011Q1

REPORT INFORMATION
  Report Type: 
  Country: None (occurrence: None)
  Receive Date: 20110308
  Receipt Date: 20110301
  Transmission Date: 20110831
  Serious: Yes (Hospitalization)
  Sender: FDA-Public Use
  Company Number: US-ROCHE-763048

PATIENT
  Sex: Female

DRUGS (8)
  1. VICODIN [Concomitant]
  2. ALLEGRA [Concomitant]
  3. LIDOCAINE [Concomitant]
     Dosage: LIDOCAINE MIXED WITH AQUAPHOR
     Route: 061
  4. KLONOPIN [Concomitant]
  5. BEVACIZUMAB [Suspect]
     Indication: BREAST CANCER
     Dosage: LAST DOSE PRIO TO SAE: 19 NOV 2010
     Route: 065
     Dates: start: 20100604, end: 20101210
  6. DOCETAXEL [Suspect]
     Indication: BREAST CANCER
     Dosage: LAST DOSE PRIOR TO SAE: 17 SEPT 2010
     Route: 065
     Dates: start: 20100604
  7. CYCLOPHOSPHAMIDE [Suspect]
     Indication: BREAST CANCER
     Dosage: LAST DOSE PRIOR TO SAE: 16 SEPT 2010
     Route: 065
     Dates: start: 20100604
  8. PRISTIQ [Concomitant]

REACTIONS (5)
  - HYPERTENSION [None]
  - MEMORY IMPAIRMENT [None]
  - HEADACHE [None]
  - DISTURBANCE IN ATTENTION [None]
  - GRIP STRENGTH DECREASED [None]
